FAERS Safety Report 9735595 (Version 2)
Quarter: 2013Q4

REPORT INFORMATION
  Report Type: Spontaneous
  Country: FR (occurrence: FR)
  Receive Date: 20131206
  Receipt Date: 20131206
  Transmission Date: 20140711
  Serious: Yes (Hospitalization)
  Sender: FDA-Public Use
  Company Number: FR-JNJFOC-20130915247

PATIENT
  Age: 63 Year
  Sex: Male

DRUGS (3)
  1. RISPERDAL CONSTA [Suspect]
     Indication: PSYCHOTIC DISORDER
     Dosage: SINCE SEVERAL YEARS
     Route: 030
     Dates: start: 20090520, end: 20130916
  2. SEROPLEX [Concomitant]
     Indication: DEPRESSION
     Route: 048
     Dates: start: 20130624
  3. STILNOX [Concomitant]
     Indication: INSOMNIA
     Route: 048
     Dates: start: 20130915

REACTIONS (5)
  - Alcoholic pancreatitis [Recovered/Resolved]
  - Diarrhoea [Unknown]
  - Hepatomegaly [Unknown]
  - Hyponatraemia [Unknown]
  - Hypokalaemia [Unknown]
